FAERS Safety Report 12064254 (Version 2)
Quarter: 2016Q1

REPORT INFORMATION
  Report Type: Report from Study
  Country: US (occurrence: US)
  Receive Date: 20160210
  Receipt Date: 20160330
  Transmission Date: 20160526
  Serious: Yes (Hospitalization, Other)
  Sender: FDA-Public Use
  Company Number: US-ABBVIE-15P-163-1514648-00

PATIENT
  Age: 55 Year
  Sex: Male

DRUGS (3)
  1. HUMIRA [Suspect]
     Active Substance: ADALIMUMAB
     Route: 058
     Dates: start: 20160309
  2. HUMIRA [Suspect]
     Active Substance: ADALIMUMAB
     Indication: CROHN^S DISEASE
     Route: 058
     Dates: start: 20150923, end: 20160119
  3. HUMIRA [Suspect]
     Active Substance: ADALIMUMAB
     Route: 058
     Dates: start: 20160120, end: 20160308

REACTIONS (24)
  - Anxiety [Unknown]
  - Diarrhoea [Unknown]
  - Paraesthesia [Unknown]
  - Activities of daily living impaired [Unknown]
  - Malaise [Unknown]
  - Rectal discharge [Unknown]
  - Pyrexia [Unknown]
  - Dysuria [Unknown]
  - Fatigue [Unknown]
  - Weight decreased [Unknown]
  - Decreased appetite [Unknown]
  - Epididymitis [Unknown]
  - Deep vein thrombosis [Unknown]
  - Proctalgia [Recovering/Resolving]
  - Insomnia [Unknown]
  - Depressed mood [Unknown]
  - Hypoaesthesia [Unknown]
  - Abdominal pain [Unknown]
  - Night sweats [Unknown]
  - Rectal haemorrhage [Unknown]
  - Gastrointestinal inflammation [Unknown]
  - Chills [Unknown]
  - Fear [Unknown]
  - Nausea [Unknown]

NARRATIVE: CASE EVENT DATE: 201511
